FAERS Safety Report 5233036-1 (Version None)
Quarter: 2007Q1

REPORT INFORMATION
  Report Type: 
  Country: None (occurrence: None)
  Receive Date: 20070207
  Receipt Date: 20070126
  Transmission Date: 20070707
  Serious: Yes (Death, Disabling)
  Sender: FDA-Public Use
  Company Number: GB-PFIZER INC-2006152371

PATIENT
  Sex: Female

DRUGS (5)
  1. REVATIO [Suspect]
     Indication: PULMONARY HYPERTENSION
     Route: 048
     Dates: start: 20050707, end: 20061205
  2. ILOPROST [Concomitant]
     Route: 055
     Dates: start: 20060805, end: 20070106
  3. BURINEX A [Concomitant]
     Route: 048
     Dates: end: 20070106
  4. BUMETANIDE [Concomitant]
     Route: 048
     Dates: end: 20070106
  5. WARFARIN SODIUM [Concomitant]
     Route: 048
     Dates: end: 20070106

REACTIONS (4)
  - CATARACT [None]
  - SEPSIS [None]
  - SYSTEMIC SCLEROSIS [None]
  - URINARY TRACT INFECTION [None]
